FAERS Safety Report 24677075 (Version 1)
Quarter: 2024Q4

REPORT INFORMATION
  Report Type: Report from Study
  Country: IT (occurrence: IT)
  Receive Date: 20241129
  Receipt Date: 20241129
  Transmission Date: 20250115
  Serious: Yes (Other)
  Sender: ALEXION PHARMACEUTICALS
  Company Number: IT-AstraZeneca-CH-00754995A

PATIENT
  Age: 71 Year

DRUGS (4)
  1. OSIMERTINIB [Suspect]
     Active Substance: OSIMERTINIB
     Dosage: 80 MILLIGRAM
  2. OSIMERTINIB [Suspect]
     Active Substance: OSIMERTINIB
     Dosage: 80 MILLIGRAM
  3. OSIMERTINIB [Suspect]
     Active Substance: OSIMERTINIB
     Dosage: 80 MILLIGRAM
  4. OSIMERTINIB [Suspect]
     Active Substance: OSIMERTINIB
     Dosage: 80 MILLIGRAM

REACTIONS (9)
  - Asthenia [Unknown]
  - Fatigue [Unknown]
  - Anaemia [Unknown]
  - Trichorrhexis [Unknown]
  - Nail disorder [Unknown]
  - Dysentery [Unknown]
  - Skin fissures [Unknown]
  - Temperature intolerance [Unknown]
  - Mood swings [Unknown]
